FAERS Safety Report 4611976-1 (Version None)
Quarter: 2005Q2

REPORT INFORMATION
  Report Type: 
  Country: None (occurrence: None)
  Receive Date: 20050308
  Receipt Date: 20041220
  Transmission Date: 20051028
  Serious: Yes (Other)
  Sender: FDA-Public Use
  Company Number: 2004UW25856

PATIENT
  Age: 61 Year
  Sex: Female
  Weight: 63.049 kg

DRUGS (5)
  1. CRESTOR [Suspect]
     Indication: HYPERCHOLESTEROLAEMIA
     Dosage: 10 MG PO
     Route: 048
     Dates: start: 20041101
  2. EVISTA [Concomitant]
  3. LORAZEPAM [Concomitant]
  4. COZAAR [Concomitant]
  5. SPIRONOLACTONE [Concomitant]

REACTIONS (5)
  - ABDOMINAL DISTENSION [None]
  - DYSPEPSIA [None]
  - FLUID RETENTION [None]
  - HEADACHE [None]
  - MALAISE [None]
